FAERS Safety Report 12249767 (Version 1)
Quarter: 2016Q2

REPORT INFORMATION
  Report Type: Spontaneous
  Country: GB (occurrence: GB)
  Receive Date: 20160408
  Receipt Date: 20160408
  Transmission Date: 20160815
  Serious: Yes (Other)
  Sender: FDA-Public Use
  Company Number: GB-BAYER-2016-067825

PATIENT
  Sex: Female

DRUGS (1)
  1. MIRENA [Suspect]
     Active Substance: LEVONORGESTREL
     Indication: MENORRHAGIA
     Dosage: 20 MCG/24HR, CONT
     Route: 015
     Dates: start: 2013

REACTIONS (7)
  - Hypoaesthesia [Unknown]
  - Device dislocation [Unknown]
  - Discomfort [Unknown]
  - Abnormal weight gain [Not Recovered/Not Resolved]
  - Bladder disorder [Unknown]
  - Back pain [Not Recovered/Not Resolved]
  - Metrorrhagia [Unknown]
